FAERS Safety Report 6647596-7 (Version None)
Quarter: 2010Q1

REPORT INFORMATION
  Report Type: 
  Country: None (occurrence: None)
  Receive Date: 20100323
  Receipt Date: 20100323
  Transmission Date: 20100710
  Serious: Yes (Hospitalization)
  Sender: FDA-Public Use
  Company Number: None

PATIENT
  Sex: Male
  Weight: 61.36 kg

DRUGS (11)
  1. MEMANTINE HCL [Suspect]
     Dosage: 85 MG
  2. CLOTRIMAZOLE TROCHE [Concomitant]
  3. DUONEB MININEB [Concomitant]
  4. HYDROMORPHONE INJ IVP [Concomitant]
  5. ZOLPIDEM TAB [Concomitant]
  6. ALBUTEROL SULFATE MININEB [Concomitant]
  7. ASPIRIN BUFFERED TAB [Concomitant]
  8. AUGMENTIN TAB [Concomitant]
  9. DEXAMETHASONE TAB [Concomitant]
  10. NITROGLYCERIN [Concomitant]
  11. OMEPRAZOLE DR [Concomitant]

REACTIONS (3)
  - LEUKOCYTOSIS [None]
  - PNEUMONIA [None]
  - PNEUMONIA ASPIRATION [None]
